FAERS Safety Report 5191233-8 (Version None)
Quarter: 2006Q4

REPORT INFORMATION
  Report Type: 
  Country: None (occurrence: None)
  Receive Date: 20061220
  Receipt Date: 20061220
  Transmission Date: 20070319
  Serious: Yes (Other)
  Sender: FDA-Public Use
  Company Number: None

PATIENT
  Age: 64 Year
  Sex: Female
  Weight: 77.1115 kg

DRUGS (1)
  1. SERTRALINE [Suspect]
     Indication: DEPRESSION
     Dosage: 150 MG DAIL PO
     Route: 048
     Dates: start: 20061218, end: 20061218

REACTIONS (6)
  - ABDOMINAL PAIN UPPER [None]
  - DYSPHAGIA [None]
  - GLOSSODYNIA [None]
  - ORAL DISCOMFORT [None]
  - PHARMACEUTICAL PRODUCT COMPLAINT [None]
  - SWOLLEN TONGUE [None]
